FAERS Safety Report 7425384-1 (Version None)
Quarter: 2011Q2

REPORT INFORMATION
  Report Type: 
  Country: None (occurrence: None)
  Receive Date: 20110420
  Receipt Date: 20110411
  Transmission Date: 20111010
  Serious: Yes (Death, Hospitalization)
  Sender: FDA-Public Use
  Company Number: FR-ELI_LILLY_AND_COMPANY-FR201104002777

PATIENT
  Sex: Male

DRUGS (10)
  1. RIVOTRIL [Concomitant]
     Indication: EPILEPSY
     Dosage: UNK
     Route: 048
  2. RIVOTRIL [Concomitant]
     Dosage: UNK, UNKNOWN
  3. NEXIUM [Concomitant]
  4. PREVISCAN [Concomitant]
     Route: 048
  5. LAMICTAL [Concomitant]
     Dosage: UNK
     Route: 048
  6. ZYPREXA [Suspect]
     Dosage: 30 MG, QD
     Route: 048
     Dates: end: 20110106
  7. LIORESAL [Concomitant]
     Dosage: 30 MG, QD
     Route: 048
     Dates: end: 20110106
  8. URBANYL [Concomitant]
     Dosage: 20 MG, QD
     Route: 048
     Dates: end: 20110106
  9. FLUVOXAMINE [Concomitant]
     Dosage: UNK
     Route: 048
     Dates: end: 20110106
  10. LAMICTAL [Concomitant]
     Dosage: UNK, UNKNOWN

REACTIONS (9)
  - SOMNOLENCE [None]
  - BRADYCARDIA [None]
  - INTERNATIONAL NORMALISED RATIO INCREASED [None]
  - OVERDOSE [None]
  - NOSOCOMIAL INFECTION [None]
  - SEPSIS [None]
  - HYPOTHERMIA [None]
  - SALIVARY HYPERSECRETION [None]
  - RESPIRATORY ARREST [None]
